FAERS Safety Report 4606373-9 (Version None)
Quarter: 2005Q2

REPORT INFORMATION
  Report Type: 
  Country: None (occurrence: None)
  Receive Date: 20050223
  Receipt Date: 20041104
  Transmission Date: 20051028
  Serious: Yes (Hospitalization)
  Sender: FDA-Public Use
  Company Number: WAES0411USA00870

PATIENT
  Age: 58 Year
  Sex: Male

DRUGS (3)
  1. ZOCOR [Suspect]
     Dosage: 120 MG/DAILY/PO
     Route: 048
  2. NIACIN [Suspect]
     Dosage: 1000 MG/BID
  3. CELEBREX [Concomitant]

REACTIONS (4)
  - ALANINE AMINOTRANSFERASE INCREASED [None]
  - ASPARTATE AMINOTRANSFERASE INCREASED [None]
  - BLOOD CREATINE PHOSPHOKINASE INCREASED [None]
  - OVERDOSE [None]
